FAERS Safety Report 8615721-4 (Version None)
Quarter: 2012Q3

REPORT INFORMATION
  Report Type: 
  Country: None (occurrence: None)
  Receive Date: 20120823
  Receipt Date: 20120814
  Transmission Date: 20120928
  Serious: Yes (Disabling, Other)
  Sender: FDA-Public Use
  Company Number: US-009507513-1206USA04951

PATIENT

DRUGS (4)
  1. FOSAMAX [Suspect]
     Indication: OSTEOPOROSIS
     Dosage: 70 MG, QW
     Route: 048
     Dates: start: 20021001, end: 20100401
  2. CALCIUM (UNSPECIFIED) (+) VITAMIN D (UNSPECIFIED) [Suspect]
     Indication: OSTEOPENIA
  3. FOSAMAX [Suspect]
     Indication: OSTEOPENIA
  4. CALCIUM (UNSPECIFIED) (+) VITAMIN D (UNSPECIFIED) [Suspect]
     Indication: OSTEOPOROSIS
     Dosage: UNK, BID

REACTIONS (9)
  - SURGERY [None]
  - STRESS FRACTURE [None]
  - HYPOTHYROIDISM [None]
  - FEMUR FRACTURE [None]
  - LOW TURNOVER OSTEOPATHY [None]
  - BLOOD CHOLESTEROL INCREASED [None]
  - DRUG INEFFECTIVE [None]
  - OSTEOPOROSIS [None]
  - HIP ARTHROPLASTY [None]
